FAERS Safety Report 6465994-1 (Version None)
Quarter: 2009Q4

REPORT INFORMATION
  Report Type: 
  Country: None (occurrence: None)
  Receive Date: 20091201
  Receipt Date: 20091201
  Transmission Date: 20100525
  Serious: Yes (Hospitalization)
  Sender: FDA-Public Use
  Company Number: None

PATIENT
  Sex: Male
  Weight: 72.5755 kg

DRUGS (1)
  1. BACLOFEN [Suspect]
     Indication: MUSCLE RELAXANT THERAPY
     Dosage: 1 TABLET TWICE A DAY ORAL
     Route: 048
     Dates: start: 20091116, end: 20091118

REACTIONS (2)
  - INCOHERENT [None]
  - VISUAL IMPAIRMENT [None]
